FAERS Safety Report 24233253 (Version 2)
Quarter: 2024Q3

REPORT INFORMATION
  Report Type: Spontaneous
  Country: PR (occurrence: PR)
  Receive Date: 20240821
  Receipt Date: 20240911
  Transmission Date: 20241016
  Serious: No
  Sender: TOLMAR
  Company Number: PR-TOLMAR, INC.-24PR051009

PATIENT
  Sex: Male

DRUGS (2)
  1. ELIGARD [Suspect]
     Active Substance: LEUPROLIDE ACETATE
     Indication: Prostate cancer
     Dosage: 7.5 MILLIGRAM, Q 1 MONTH
     Route: 058
  2. ELIGARD [Suspect]
     Active Substance: LEUPROLIDE ACETATE
     Dosage: 7.5 MILLIGRAM, Q 1 MONTH
     Route: 058
     Dates: start: 20230825

REACTIONS (3)
  - Intercepted product administration error [Unknown]
  - Product packaging quantity issue [Unknown]
  - Syringe issue [Unknown]
